FAERS Safety Report 18078441 (Version 1)
Quarter: 2020Q3

REPORT INFORMATION
  Report Type: Spontaneous
  Country: US (occurrence: US)
  Receive Date: 20200727
  Receipt Date: 20200727
  Transmission Date: 20201103
  Serious: Yes (Other)
  Sender: FDA-Public Use
  Company Number: None

PATIENT
  Age: 66 Year
  Sex: Male
  Weight: 98.3 kg

DRUGS (7)
  1. LEVOTHYROXINE 100MCG DAILY [Concomitant]
     Dates: start: 20200719
  2. APIXABAN 5MG BID [Concomitant]
     Dates: start: 20200724
  3. INSULIN GLARGINE 15UNITS HS [Concomitant]
     Dates: start: 20200724
  4. BUPROPRION 50MG TID [Concomitant]
     Dates: start: 20200718
  5. APRIPIRAZOLE 5MG BID [Concomitant]
     Dates: start: 20200718
  6. DULOXETINE 30MG DAILY [Concomitant]
     Dates: start: 20200718
  7. REMDESIVIR. [Suspect]
     Active Substance: REMDESIVIR
     Indication: COVID-19
     Dosage: ?          OTHER FREQUENCY:ONCE;?
     Route: 040
     Dates: start: 20200724, end: 20200725

REACTIONS (1)
  - Liver function test increased [None]

NARRATIVE: CASE EVENT DATE: 20200725
